FAERS Safety Report 10184026 (Version 1)
Quarter: 2014Q2

REPORT INFORMATION
  Report Type: Spontaneous
  Country: RU (occurrence: RU)
  Receive Date: 20140520
  Receipt Date: 20140520
  Transmission Date: 20141212
  Serious: Yes (Other)
  Sender: FDA-Public Use
  Company Number: RU-ELI_LILLY_AND_COMPANY-RU201405002845

PATIENT
  Age: 74 Year
  Sex: Female

DRUGS (1)
  1. HUMULIN 30% REGULAR, 70% NPH [Suspect]
     Indication: PRODUCT USED FOR UNKNOWN INDICATION
     Route: 058

REACTIONS (4)
  - Hyperaemia [Recovering/Resolving]
  - Injection site extravasation [Recovering/Resolving]
  - Injection site oedema [Recovering/Resolving]
  - Eyelids pruritus [Recovering/Resolving]
